FAERS Safety Report 20505722 (Version 1)
Quarter: 2022Q1

REPORT INFORMATION
  Report Type: Spontaneous
  Country: JP (occurrence: JP)
  Receive Date: 20220223
  Receipt Date: 20220223
  Transmission Date: 20220423
  Serious: Yes (Death, Hospitalization, Other)
  Sender: FDA-Public Use
  Company Number: JP-LUPIN PHARMACEUTICALS INC.-2022-02200

PATIENT
  Age: 54 Year
  Sex: Female

DRUGS (18)
  1. VANCOMYCIN [Suspect]
     Active Substance: VANCOMYCIN
     Indication: Enterococcal infection
     Dosage: 0.5 GRAM, BID
     Route: 042
  2. LINEZOLID [Suspect]
     Active Substance: LINEZOLID
     Indication: Enterococcal infection
     Dosage: 600 MG, BID
     Route: 048
  3. TEICOPLANIN [Suspect]
     Active Substance: TEICOPLANIN
     Indication: Enterococcal infection
     Dosage: 400 MG, EVERY 48 HOURS
     Route: 042
  4. MEROPENEM [Suspect]
     Active Substance: MEROPENEM
     Indication: Enterococcal infection
     Dosage: 0.5 GRAM, QD
     Route: 042
  5. MEROPENEM [Suspect]
     Active Substance: MEROPENEM
     Indication: Hepatic cyst infection
  6. AZOSEMIDE [Concomitant]
     Active Substance: AZOSEMIDE
     Indication: Diuretic therapy
     Dosage: 60 MG, QD
     Route: 048
  7. AZOSEMIDE [Concomitant]
     Active Substance: AZOSEMIDE
     Indication: Ascites
  8. FUROSEMIDE [Concomitant]
     Active Substance: FUROSEMIDE
     Indication: Diuretic therapy
     Dosage: 60 MG, QD
     Route: 048
  9. FUROSEMIDE [Concomitant]
     Active Substance: FUROSEMIDE
     Indication: Ascites
  10. TOLVAPTAN [Concomitant]
     Active Substance: TOLVAPTAN
     Indication: Diuretic therapy
     Dosage: 15 MG, QD
     Route: 048
  11. TOLVAPTAN [Concomitant]
     Active Substance: TOLVAPTAN
     Indication: Ascites
  12. PIPERACILLIN SODIUM\TAZOBACTAM SODIUM [Concomitant]
     Active Substance: PIPERACILLIN SODIUM\TAZOBACTAM SODIUM
     Indication: Hepatic cyst infection
     Dosage: 4.5 GRAM, TID
     Route: 042
  13. MICAFUNGIN [Concomitant]
     Active Substance: MICAFUNGIN
     Indication: Candida infection
     Dosage: 50 MG, QD
     Route: 042
  14. MICAFUNGIN [Concomitant]
     Active Substance: MICAFUNGIN
     Indication: Candida infection
  15. CANDESARTAN [Concomitant]
     Active Substance: CANDESARTAN
     Indication: Hypertension
     Dosage: 8 MG
     Route: 065
  16. HEPARIN [Concomitant]
     Active Substance: HEPARIN SODIUM
     Indication: Thrombosis prophylaxis
     Dosage: 10000 INTERNATIONAL UNIT, QD
     Route: 065
  17. APIXABAN [Concomitant]
     Active Substance: APIXABAN
     Indication: Thrombosis prophylaxis
     Dosage: 5 MG, QD
     Route: 065
  18. TRAFERMIN [Concomitant]
     Active Substance: TRAFERMIN
     Indication: Wound
     Dosage: UNK
     Route: 061

REACTIONS (3)
  - Sepsis [Fatal]
  - Drug ineffective for unapproved indication [Fatal]
  - Off label use [Unknown]
